FAERS Safety Report 4397158-X (Version None)
Quarter: 2004Q3

REPORT INFORMATION
  Report Type: 
  Country: None (occurrence: None)
  Receive Date: 20040708
  Receipt Date: 20040625
  Transmission Date: 20050211
  Serious: Yes (Hospitalization)
  Sender: FDA-Public Use
  Company Number: DE-JNJFOC-20040607199

PATIENT
  Age: 37 Year
  Sex: Male
  Weight: 104 kg

DRUGS (6)
  1. HALDOL [Suspect]
     Indication: SCHIZOAFFECTIVE DISORDER
     Dosage: 10 MG, IN 1 DAY, ORAL
     Route: 048
     Dates: start: 20040219, end: 20040220
  2. ZYPREXA [Suspect]
     Dosage: 15 MG, IN 1 DAY, ORAL; 10 MG, IN 1 DAY, ORAL; 20 MG, IN 1 DAY, ORAL;  25 MG, IN 1 DAY, ORAL
     Route: 048
     Dates: start: 20040220
  3. ZYPREXA [Suspect]
     Dosage: 15 MG, IN 1 DAY, ORAL; 10 MG, IN 1 DAY, ORAL; 20 MG, IN 1 DAY, ORAL;  25 MG, IN 1 DAY, ORAL
     Route: 048
     Dates: start: 20040222
  4. ZYPREXA [Suspect]
     Dosage: 15 MG, IN 1 DAY, ORAL; 10 MG, IN 1 DAY, ORAL; 20 MG, IN 1 DAY, ORAL;  25 MG, IN 1 DAY, ORAL
     Route: 048
     Dates: start: 20040223
  5. ZYPREXA [Suspect]
     Dosage: 15 MG, IN 1 DAY, ORAL; 10 MG, IN 1 DAY, ORAL; 20 MG, IN 1 DAY, ORAL;  25 MG, IN 1 DAY, ORAL
     Route: 048
     Dates: start: 20040224
  6. DIAZEPAM [Concomitant]

REACTIONS (4)
  - ATRIAL FIBRILLATION [None]
  - DRUG INTERACTION [None]
  - ELECTROCARDIOGRAM QT CORRECTED INTERVAL PROLONGED [None]
  - TACHYCARDIA [None]
